FAERS Safety Report 7900444-7 (Version None)
Quarter: 2011Q4

REPORT INFORMATION
  Report Type: 
  Country: None (occurrence: None)
  Receive Date: 20111108
  Receipt Date: 20111007
  Transmission Date: 20120403
  Serious: Yes (Other)
  Sender: FDA-Public Use
  Company Number: US-JNJFOC-20111100975

PATIENT
  Sex: Female
  Weight: 79.38 kg

DRUGS (6)
  1. MOTRIN [Suspect]
     Indication: JOINT SWELLING
     Route: 048
  2. MOTRIN [Suspect]
     Route: 048
  3. ALEVE [Suspect]
     Indication: ARTHRALGIA
     Dosage: 1-2 PER DAY FOR OVER 1 YEAR
     Route: 065
  4. TYLENOL-500 [Suspect]
     Indication: JOINT SWELLING
     Route: 065
  5. ALEVE [Suspect]
     Dosage: 1-2 PER DAY FOR OVER 1 YEAR
     Route: 065
  6. TYLENOL-500 [Suspect]
     Route: 065

REACTIONS (8)
  - COELIAC DISEASE [None]
  - IRON DEFICIENCY ANAEMIA [None]
  - DYSPHAGIA [None]
  - FLUSHING [None]
  - DRUG INEFFECTIVE [None]
  - GASTROINTESTINAL HAEMORRHAGE [None]
  - ABDOMINAL DISCOMFORT [None]
  - ARTHRALGIA [None]
